FAERS Safety Report 7314136-9 (Version None)
Quarter: 2011Q1

REPORT INFORMATION
  Report Type: 
  Country: None (occurrence: None)
  Receive Date: 20110225
  Receipt Date: 20100607
  Transmission Date: 20110831
  Serious: No
  Sender: FDA-Public Use
  Company Number: US-MYLANLABS-2010S1008619

PATIENT
  Age: 35 Year
  Sex: Female

DRUGS (5)
  1. AMNESTEEM [Suspect]
     Indication: ACNE CYSTIC
     Dates: start: 20100201
  2. AMNESTEEM [Suspect]
     Dates: start: 20100401, end: 20100501
  3. AMNESTEEM [Suspect]
     Dates: start: 20100401, end: 20100501
  4. AMNESTEEM [Suspect]
     Indication: FOLLICULITIS
     Dates: start: 20100201
  5. YASMIN [Concomitant]
     Indication: CONTRACEPTION

REACTIONS (2)
  - LIBIDO DECREASED [None]
  - MOOD ALTERED [None]
